FAERS Safety Report 7846735-X (Version None)
Quarter: 2011Q4

REPORT INFORMATION
  Report Type: 
  Country: None (occurrence: None)
  Receive Date: 20111025
  Receipt Date: 20111019
  Transmission Date: 20120403
  Serious: Yes (Other)
  Sender: FDA-Public Use
  Company Number: PHHY2011US40358

PATIENT
  Sex: Male

DRUGS (7)
  1. DEPAKOTE [Concomitant]
  2. QVAR 40 [Concomitant]
  3. AFINITOR [Suspect]
     Indication: TUBEROUS SCLEROSIS
     Dosage: 5 MG, QD
     Route: 048
     Dates: start: 20110218, end: 20110911
  4. AFINITOR [Suspect]
     Dosage: 5 MG, QD
     Route: 048
  5. SABRIL [Concomitant]
     Route: 065
  6. KLONOPIN [Concomitant]
     Route: 065
  7. KEPPRA [Concomitant]

REACTIONS (3)
  - IRRITABILITY [None]
  - EPILEPSY [None]
  - ABSCESS NECK [None]
